FAERS Safety Report 5705218-3 (Version None)
Quarter: 2008Q2

REPORT INFORMATION
  Report Type: 
  Country: None (occurrence: None)
  Receive Date: 20080410
  Receipt Date: 20080328
  Transmission Date: 20081010
  Serious: Yes (Hospitalization)
  Sender: FDA-Public Use
  Company Number: E2020-02545-SOL-US

PATIENT
  Age: 89 Year
  Sex: Female

DRUGS (6)
  1. ARICEPT [Suspect]
     Indication: MENTAL IMPAIRMENT
     Dosage: 10 MG, 1 IN 1 D; ORAL
     Route: 048
     Dates: start: 20070101
  2. OMEPRAZOLE [Concomitant]
  3. AMLODIPINE [Concomitant]
  4. LISINOPRIL [Concomitant]
  5. CIPROFLOXACIN [Concomitant]
  6. THYROID PILLS [Concomitant]

REACTIONS (4)
  - DEHYDRATION [None]
  - DIARRHOEA [None]
  - MALNUTRITION [None]
  - MENTAL IMPAIRMENT [None]
